FAERS Safety Report 13775686 (Version 1)
Quarter: 2017Q3

REPORT INFORMATION
  Report Type: Spontaneous
  Country: US (occurrence: US)
  Receive Date: 20170720
  Receipt Date: 20170720
  Transmission Date: 20171127
  Serious: No
  Sender: FDA-Public Use
  Company Number: US-BAUSCH-BL-2017-003530

PATIENT
  Age: 65 Year
  Sex: Female
  Weight: 56.75 kg

DRUGS (8)
  1. ZITHROMAX [Suspect]
     Active Substance: AZITHROMYCIN DIHYDRATE
     Indication: SWELLING
     Route: 048
     Dates: start: 20170123
  2. ZITHROMAX [Suspect]
     Active Substance: AZITHROMYCIN DIHYDRATE
     Indication: PRURITUS
  3. BESIVANCE [Suspect]
     Active Substance: BESIFLOXACIN
     Indication: PRURITUS
  4. BESIVANCE [Suspect]
     Active Substance: BESIFLOXACIN
     Indication: OPHTHALMIC FLUID DRAINAGE
  5. BESIVANCE [Suspect]
     Active Substance: BESIFLOXACIN
     Indication: SWELLING
     Dosage: IN THE LEFT EYE
     Route: 047
     Dates: start: 20170123, end: 20170128
  6. BESIVANCE [Suspect]
     Active Substance: BESIFLOXACIN
     Indication: EYE SWELLING
     Dosage: IN THE LEFT EYE
     Route: 047
     Dates: start: 20170123, end: 20170128
  7. ZITHROMAX [Suspect]
     Active Substance: AZITHROMYCIN DIHYDRATE
     Indication: OPHTHALMIC FLUID DRAINAGE
  8. ZITHROMAX [Suspect]
     Active Substance: AZITHROMYCIN DIHYDRATE
     Indication: EYE SWELLING

REACTIONS (7)
  - Application site erythema [Recovered/Resolved]
  - Application site pain [Recovered/Resolved]
  - Application site irritation [Recovered/Resolved]
  - Incorrect dose administered [Unknown]
  - Product dropper issue [Unknown]
  - Condition aggravated [Recovered/Resolved]
  - Conjunctivitis [Recovered/Resolved]

NARRATIVE: CASE EVENT DATE: 201701
